FAERS Safety Report 9848834 (Version 1)
Quarter: 2014Q1

REPORT INFORMATION
  Report Type: Spontaneous
  Country: US (occurrence: None)
  Receive Date: 20140124
  Receipt Date: 20140124
  Transmission Date: 20141002
  Serious: Yes (Life-Threatening, Hospitalization)
  Sender: FDA-Public Use
  Company Number: None

PATIENT
  Age: 55 Year
  Sex: Female
  Weight: 58.97 kg

DRUGS (5)
  1. TECFIDERA 240MG BIOGEN IDEC [Suspect]
     Indication: MULTIPLE SCLEROSIS
     Route: 048
     Dates: start: 20130430, end: 20131113
  2. TEKTURNA [Concomitant]
  3. ASA [Concomitant]
  4. CALCIUM [Concomitant]
  5. HCI [Concomitant]

REACTIONS (8)
  - Fatigue [None]
  - Cough [None]
  - Lung abscess [None]
  - Culture positive [None]
  - Streptococcus test positive [None]
  - Chest pain [None]
  - Malaise [None]
  - Tooth abscess [None]
